FAERS Safety Report 9630769 (Version 1)
Quarter: 2013Q4

REPORT INFORMATION
  Report Type: Spontaneous
  Country: US (occurrence: US)
  Receive Date: 20131018
  Receipt Date: 20131018
  Transmission Date: 20140711
  Serious: Yes (Hospitalization, Other)
  Sender: FDA-Public Use
  Company Number: US-ROCHE-1288408

PATIENT
  Age: 27 Year
  Sex: Female

DRUGS (1)
  1. RITUXAN [Suspect]
     Indication: LYMPHOMA
     Dosage: ONCE EVERY 14 DAYS
     Route: 041
     Dates: start: 201002, end: 201007

REACTIONS (17)
  - Pneumonia [Recovered/Resolved]
  - Immune system disorder [Recovered/Resolved]
  - Clostridium difficile infection [Recovered/Resolved]
  - Fungal infection [Recovered/Resolved]
  - Haematotoxicity [Recovered/Resolved]
  - Pharyngeal oedema [Recovered/Resolved]
  - Herpes zoster [Recovered/Resolved]
  - Stomatitis [Recovered/Resolved]
  - Gastrointestinal disorder [Recovered/Resolved]
  - Dyspepsia [Unknown]
  - Alopecia [Recovered/Resolved]
  - Nausea [Recovered/Resolved]
  - Gastric disorder [Recovered/Resolved]
  - Odynophagia [Recovered/Resolved]
  - Oral pain [Not Recovered/Not Resolved]
  - Throat irritation [Recovered/Resolved]
  - Pyrexia [Recovered/Resolved]
